FAERS Safety Report 6404759-3 (Version None)
Quarter: 2009Q4

REPORT INFORMATION
  Report Type: 
  Country: None (occurrence: None)
  Receive Date: 20091016
  Receipt Date: 20091008
  Transmission Date: 20100525
  Serious: Yes (Hospitalization)
  Sender: FDA-Public Use
  Company Number: FR-ROCHE-661847

PATIENT
  Sex: Male

DRUGS (10)
  1. CAPECITABINE [Suspect]
     Indication: GASTRIC CANCER
     Route: 048
     Dates: start: 20060502
  2. CAPECITABINE [Suspect]
     Route: 048
     Dates: start: 20060705
  3. CAPECITABINE [Suspect]
     Route: 048
     Dates: start: 20060817, end: 20060830
  4. EPIRUBICIN HCL [Suspect]
     Indication: GASTRIC CANCER
     Dosage: DRUG: FARMORUBICINE (EPIRUBICIN HCL)
     Route: 042
     Dates: start: 20060502
  5. EPIRUBICIN HCL [Suspect]
     Route: 042
     Dates: start: 20060705
  6. EPIRUBICIN HCL [Suspect]
     Route: 042
     Dates: start: 20060816
  7. CISPLATIN [Suspect]
     Indication: GASTRIC CANCER
     Route: 042
     Dates: start: 20060502
  8. CISPLATIN [Suspect]
     Route: 042
     Dates: start: 20060705
  9. CISPLATIN [Suspect]
     Route: 042
     Dates: start: 20090816
  10. SKENAN [Concomitant]

REACTIONS (2)
  - GENERAL PHYSICAL HEALTH DETERIORATION [None]
  - SEPSIS [None]
